FAERS Safety Report 8829692 (Version 1)
Quarter: 2012Q4

REPORT INFORMATION
  Report Type: 
  Country: US (occurrence: US)
  Receive Date: 20121008
  Receipt Date: 20121008
  Transmission Date: 20130627
  Serious: No
  Sender: FDA-Public Use
  Company Number: US-TEVA-306754USA

PATIENT
  Sex: Female

DRUGS (1)
  1. QVAR [Suspect]
     Dosage: 160 Microgram Daily;
     Route: 055
     Dates: start: 20111025

REACTIONS (3)
  - Pulmonary congestion [Not Recovered/Not Resolved]
  - Nasal congestion [Not Recovered/Not Resolved]
  - Cough [Not Recovered/Not Resolved]
